FAERS Safety Report 14491962 (Version 1)
Quarter: 2018Q1

REPORT INFORMATION
  Report Type: Spontaneous
  Country: AR (occurrence: AR)
  Receive Date: 20180206
  Receipt Date: 20180206
  Transmission Date: 20180509
  Serious: Yes (Other)
  Sender: FDA-Public Use
  Company Number: AR-PFIZER INC-2018025731

PATIENT
  Age: 78 Year
  Sex: Female

DRUGS (1)
  1. IBRANCE [Suspect]
     Active Substance: PALBOCICLIB
     Indication: BREAST CANCER METASTATIC
     Dosage: 125 MG, CYCLIC (3/1 SCHEME)
     Dates: start: 20170418

REACTIONS (12)
  - Nervousness [Unknown]
  - Mental impairment [Unknown]
  - Neoplasm progression [Unknown]
  - Pain in extremity [Unknown]
  - Rash macular [Unknown]
  - Malaise [Unknown]
  - Bone pain [Unknown]
  - Diarrhoea [Unknown]
  - Anxiety [Unknown]
  - Muscle strain [Unknown]
  - Anaemia [Unknown]
  - Abdominal discomfort [Unknown]

NARRATIVE: CASE EVENT DATE: 2017
